FAERS Safety Report 7384026-4 (Version None)
Quarter: 2011Q1

REPORT INFORMATION
  Report Type: 
  Country: None (occurrence: None)
  Receive Date: 20110323
  Receipt Date: 20110309
  Transmission Date: 20110831
  Serious: Yes (Other)
  Sender: FDA-Public Use
  Company Number: 014932

PATIENT
  Sex: Male
  Weight: 115.5 kg

DRUGS (14)
  1. K-DUR [Concomitant]
  2. CERTOLIZUMAB PEGOL [Suspect]
     Indication: RHEUMATOID ARTHRITIS
     Dosage: 200 MG 1X2 WEEKS, 400 MG, 3 DOSES, 200 MG 1 DOSE, SUBCUTANEOUS
     Route: 058
     Dates: start: 20100406, end: 20100505
  3. CERTOLIZUMAB PEGOL [Suspect]
     Indication: RHEUMATOID ARTHRITIS
     Dosage: 200 MG 1X2 WEEKS, 400 MG, 3 DOSES, 200 MG 1 DOSE, SUBCUTANEOUS
     Route: 058
     Dates: start: 20100518, end: 20100518
  4. CERTOLIZUMAB PEGOL [Suspect]
     Indication: RHEUMATOID ARTHRITIS
     Dosage: 200 MG 1X2 WEEKS, 400 MG, 3 DOSES, 200 MG 1 DOSE, SUBCUTANEOUS
     Route: 058
     Dates: start: 20100518, end: 20100527
  5. HYDROCHLOROTHIAZIDE [Concomitant]
  6. FISH OIL [Concomitant]
  7. PREDNISONE [Concomitant]
  8. VICODIN [Concomitant]
  9. MULTI-VITAMIN [Concomitant]
  10. PROZAC [Concomitant]
  11. MOTRIN [Concomitant]
  12. PLAQUENIL [Concomitant]
  13. METHOTREXATE [Concomitant]
  14. VITAMINE C [Concomitant]

REACTIONS (13)
  - BLOOD GLUCOSE INCREASED [None]
  - TOOTHACHE [None]
  - PAIN IN EXTREMITY [None]
  - OEDEMA PERIPHERAL [None]
  - CHEST WALL ABSCESS [None]
  - PAIN [None]
  - ARTHRALGIA [None]
  - ACNE [None]
  - INSOMNIA [None]
  - PROTEUS TEST POSITIVE [None]
  - BLOOD UREA NITROGEN/CREATININE RATIO INCREASED [None]
  - CELLULITIS [None]
  - PRURITUS [None]
